FAERS Safety Report 20176491 (Version 1)
Quarter: 2021Q4

REPORT INFORMATION
  Report Type: Spontaneous
  Country: BR (occurrence: BR)
  Receive Date: 20211213
  Receipt Date: 20211213
  Transmission Date: 20220303
  Serious: Yes (Death, Other)
  Sender: FDA-Public Use
  Company Number: BR-SAMOHPHARM-2021005064

PATIENT

DRUGS (2)
  1. HEME [Suspect]
     Active Substance: HEME
     Indication: Porphyria acute
     Dosage: 4 AMPULES
     Route: 042
     Dates: start: 2021
  2. PANHEMATIN [Suspect]
     Active Substance: HEMIN
     Indication: Porphyria acute
     Dosage: 10 AMPOULES (2 CYCLES OF 4 VIALS, THEN MORE 1 VIAL AND ANOTHER 1 VIAL)
     Route: 042
     Dates: start: 2021

REACTIONS (4)
  - Severe acute respiratory syndrome [Fatal]
  - Septic shock [Fatal]
  - Incorrect dose administered [Recovered/Resolved]
  - Prescribed overdose [Recovered/Resolved]
